FAERS Safety Report 15949988 (Version 3)
Quarter: 2021Q4

REPORT INFORMATION
  Report Type: Spontaneous
  Country: IN (occurrence: IN)
  Receive Date: 20190211
  Receipt Date: 20211019
  Transmission Date: 20220303
  Serious: Yes (Death, Other)
  Sender: FDA-Public Use
  Company Number: IN-PFIZER INC-2019060892

PATIENT
  Age: 67 Year
  Sex: Male

DRUGS (1)
  1. CRIZOTINIB [Suspect]
     Active Substance: CRIZOTINIB
     Indication: Non-small cell lung cancer metastatic
     Dosage: 250 MG, TWICE A DAY
     Route: 048
     Dates: start: 20160330, end: 20190316

REACTIONS (2)
  - Neoplasm progression [Fatal]
  - Typhoid fever [Unknown]
